FAERS Safety Report 21353287 (Version 1)
Quarter: 2022Q3

REPORT INFORMATION
  Report Type: Spontaneous
  Country: US (occurrence: US)
  Receive Date: 20220920
  Receipt Date: 20220920
  Transmission Date: 20221027
  Serious: No
  Sender: FDA-Public Use
  Company Number: US-drreddys-SPO/USA/22/0154164

PATIENT
  Age: 66 Year
  Sex: Male
  Weight: 56.25 kg

DRUGS (1)
  1. NICOTINE [Suspect]
     Active Substance: NICOTINE
     Indication: Tobacco user
     Route: 062
     Dates: start: 20220726, end: 20220729

REACTIONS (4)
  - Dry skin [Unknown]
  - Application site rash [Unknown]
  - Application site pain [Unknown]
  - Product administration interrupted [Unknown]
